FAERS Safety Report 21770196 (Version 2)
Quarter: 2022Q4

REPORT INFORMATION
  Report Type: Report from Study
  Country: FR (occurrence: FR)
  Receive Date: 20221223
  Receipt Date: 20221229
  Transmission Date: 20230113
  Serious: Yes (Hospitalization, Other)
  Sender: FDA-Public Use
  Company Number: FR-002147023-NVSC2022FR287088

PATIENT
  Age: 24 Year
  Sex: Female
  Weight: 53 kg

DRUGS (4)
  1. CYTARABINE [Suspect]
     Active Substance: CYTARABINE
     Dosage: 3100 MG
     Route: 058
     Dates: start: 20220614, end: 20220615
  2. NELARABINE [Suspect]
     Active Substance: NELARABINE
     Indication: Philadelphia positive acute lymphocytic leukaemia
     Dosage: 2340 G
     Route: 042
     Dates: start: 20220512, end: 20220513
  3. NELARABINE [Suspect]
     Active Substance: NELARABINE
     Dosage: 2340 G
     Route: 042
     Dates: start: 20220517, end: 20220517
  4. NELARABINE [Suspect]
     Active Substance: NELARABINE
     Dosage: 2340 G
     Route: 042
     Dates: start: 20220515, end: 20220515

REACTIONS (1)
  - Febrile neutropenia [Recovered/Resolved]

NARRATIVE: CASE EVENT DATE: 20220621
